FAERS Safety Report 8906577 (Version 12)
Quarter: 2014Q2

REPORT INFORMATION
  Report Type: Report from Study
  Country: FR (occurrence: FR)
  Receive Date: 20121113
  Receipt Date: 20140402
  Transmission Date: 20141212
  Serious: Yes (Hospitalization, Disabling)
  Sender: FDA-Public Use
  Company Number: FR-ROCHE-1137919

PATIENT
  Age: 79 Year
  Sex: Male
  Weight: 87 kg

DRUGS (9)
  1. VISMODEGIB [Suspect]
     Indication: BASAL CELL CARCINOMA
     Dosage: DATE OF LAST DOSE PRIOR TO SAE: 18/SEP/2012. DOSE FORM REPORTED AS: 150 MG.
     Route: 048
     Dates: start: 20120827, end: 20120920
  2. BACTRIM [Concomitant]
     Indication: INFECTION PROPHYLAXIS
     Route: 065
     Dates: start: 200801
  3. PREVISCAN (FRANCE) [Concomitant]
     Route: 065
  4. ESOMEPRAZOLE [Concomitant]
     Route: 065
  5. DAFLON [Concomitant]
     Route: 065
  6. DOLIPRANE [Concomitant]
     Route: 065
  7. CALTRATE + D [Concomitant]
     Route: 065
  8. FLUVASTATIN [Concomitant]
     Indication: HYPERCHOLESTEROLAEMIA
     Dosage: LP80
     Route: 065
  9. ZELITREX [Concomitant]
     Indication: INFECTION PROPHYLAXIS
     Route: 065
     Dates: start: 200801

REACTIONS (1)
  - Plasma cell myeloma [Not Recovered/Not Resolved]
